FAERS Safety Report 8173471-5 (Version None)
Quarter: 2012Q1

REPORT INFORMATION
  Report Type: 
  Country: None (occurrence: None)
  Receive Date: 20120224
  Receipt Date: 20120207
  Transmission Date: 20120608
  Serious: Yes (Other)
  Sender: FDA-Public Use
  Company Number: FK201200375

PATIENT
  Age: 59 Year
  Sex: Female

DRUGS (4)
  1. CARBOPLATIN [Suspect]
     Indication: BREAST CANCER
  2. DOCETAXEL [Suspect]
     Indication: BREAST CANCER
  3. TRASTUZUMAB (TRASTUZUMAB) [Suspect]
     Indication: BREAST CANCER
  4. PREDNISONE TAB [Concomitant]

REACTIONS (4)
  - NECK PAIN [None]
  - CHILLS [None]
  - PYREXIA [None]
  - CAROTIDYNIA [None]
